FAERS Safety Report 20985350 (Version 1)
Quarter: 2022Q2

REPORT INFORMATION
  Report Type: Spontaneous
  Country: CH (occurrence: CH)
  Receive Date: 20220621
  Receipt Date: 20220621
  Transmission Date: 20220721
  Serious: Yes (Death, Hospitalization, Other)
  Sender: FDA-Public Use
  Company Number: CH-AMGEN-CHESP2022102513

PATIENT
  Age: 83 Year
  Sex: Female

DRUGS (5)
  1. XGEVA [Suspect]
     Active Substance: DENOSUMAB
     Indication: Metastases to bone
     Dosage: UNK, QMO
     Route: 065
     Dates: start: 202004
  2. XGEVA [Suspect]
     Active Substance: DENOSUMAB
     Indication: Osteopenia
  3. CALCIUM\CHOLECALCIFEROL [Concomitant]
     Active Substance: CALCIUM\CHOLECALCIFEROL
  4. CARBOPLATIN [Concomitant]
     Active Substance: CARBOPLATIN
     Dosage: 6 CYCLES OF 3 WEEKLY (175 MG/M2)
  5. TAXOL [Concomitant]
     Active Substance: PACLITAXEL
     Dosage: 17S MG/M2, 6 CYCLES OF 3 WEEKLY

REACTIONS (6)
  - Death [Fatal]
  - Endometrial adenocarcinoma [Unknown]
  - Cerebral infarction [Unknown]
  - Peritoneal lesion [Unknown]
  - Ascites [Unknown]
  - Spinal fracture [Unknown]

NARRATIVE: CASE EVENT DATE: 20200101
